FAERS Safety Report 7329664-X (Version None)
Quarter: 2011Q1

REPORT INFORMATION
  Report Type: 
  Country: None (occurrence: None)
  Receive Date: 20110223
  Receipt Date: 20110208
  Transmission Date: 20110831
  Serious: Yes (Life-Threatening, Hospitalization)
  Sender: FDA-Public Use
  Company Number: 1000018877

PATIENT
  Age: 76 Year
  Sex: Female

DRUGS (3)
  1. ESCITALOPRAM [Suspect]
     Dosage: 15 MG (15 MG, 1 IN 1 D), ORAL
     Route: 048
     Dates: start: 20081027, end: 20100613
  2. SINTROM [Suspect]
     Dosage: ORAL
     Route: 048
     Dates: end: 20100613
  3. IBUPROFEN [Suspect]
     Dosage: ORAL
     Route: 048
     Dates: start: 20100531, end: 20100613

REACTIONS (5)
  - GASTRIC ULCER [None]
  - UPPER GASTROINTESTINAL HAEMORRHAGE [None]
  - INTERNATIONAL NORMALISED RATIO DECREASED [None]
  - DRUG INTERACTION [None]
  - HAEMATOCRIT DECREASED [None]
